FAERS Safety Report 7657037-9 (Version None)
Quarter: 2011Q3

REPORT INFORMATION
  Report Type: 
  Country: None (occurrence: None)
  Receive Date: 20110804
  Receipt Date: 20110721
  Transmission Date: 20111222
  Serious: Yes (Hospitalization)
  Sender: FDA-Public Use
  Company Number: FR-SANOFI-AVENTIS-2011SA035007

PATIENT
  Age: 69 Year
  Sex: Male

DRUGS (19)
  1. AVODART [Concomitant]
     Route: 048
  2. PLAVIX [Suspect]
     Indication: ARTERIOGRAM CORONARY
     Route: 048
     Dates: start: 20110415, end: 20110416
  3. LEXOMIL [Concomitant]
     Route: 048
  4. ASPIRIN [Concomitant]
     Route: 048
     Dates: start: 20110401
  5. EZETIMIBE [Concomitant]
     Dates: start: 20110401
  6. CLARITHROMYCIN [Concomitant]
     Dates: start: 20110408
  7. ARIXTRA [Suspect]
     Indication: ARTERIOGRAM CORONARY
     Route: 058
     Dates: start: 20110415, end: 20110416
  8. RAMIPRIL [Concomitant]
     Route: 048
     Dates: start: 20110415, end: 20110507
  9. VENTOLIN [Concomitant]
     Route: 065
  10. BECLOMETHASONE DIPROPIONATE [Concomitant]
     Route: 065
  11. ACETAMINOPHEN [Concomitant]
     Route: 048
  12. REPAGLINIDE [Concomitant]
     Route: 048
  13. VASTAREL ^SERVIER^ [Concomitant]
     Route: 048
  14. PERMIXON [Concomitant]
     Route: 048
  15. SULFARLEM [Concomitant]
     Route: 048
  16. PREDNISOLONE [Concomitant]
     Indication: BRONCHITIS
     Route: 048
     Dates: start: 20110408, end: 20110412
  17. AUGMENTIN '125' [Suspect]
     Indication: BRONCHITIS
     Route: 048
     Dates: start: 20110331, end: 20110408
  18. SIMVASTATIN [Suspect]
     Indication: HYPERCHOLESTEROLAEMIA
     Route: 048
     Dates: start: 20110416, end: 20110506
  19. BISOPROLOL FUMARATE [Concomitant]
     Route: 048
     Dates: start: 20110401

REACTIONS (4)
  - SKIN REACTION [None]
  - DRUG RASH WITH EOSINOPHILIA AND SYSTEMIC SYMPTOMS [None]
  - EOSINOPHILIA [None]
  - PYREXIA [None]
